FAERS Safety Report 13592341 (Version 1)
Quarter: 2017Q2

REPORT INFORMATION
  Report Type: Spontaneous
  Country: FR (occurrence: FR)
  Receive Date: 20170530
  Receipt Date: 20170530
  Transmission Date: 20170830
  Serious: Yes (Life-Threatening)
  Sender: FDA-Public Use
  Company Number: FR-TEVA-771752ROM

PATIENT
  Age: 47 Year
  Sex: Female

DRUGS (9)
  1. CARBOPLATIN. [Suspect]
     Active Substance: CARBOPLATIN
     Indication: OVARIAN CANCER METASTATIC
     Dosage: LAST COURSE OF PACLITAXEL-CARBOPLATIN
     Route: 042
     Dates: start: 20170302, end: 20170302
  2. CALCIDIA [Concomitant]
     Active Substance: CALCIUM POLYCARBOPHIL
     Dosage: 1 DOSAGE FORMS DAILY;
  3. PANTOPRAZOLE [Concomitant]
     Active Substance: PANTOPRAZOLE
     Dosage: 20 MILLIGRAM DAILY;
  4. PACLITAXEL. [Suspect]
     Active Substance: PACLITAXEL
     Indication: OVARIAN CANCER METASTATIC
     Dosage: LAST COURSE OF PACLITAXEL-CARBOPLATIN
     Route: 042
     Dates: start: 20170302, end: 20170302
  5. ZYMAD [Concomitant]
     Active Substance: CHOLECALCIFEROL
     Dosage: 4 DOSAGE FORMS DAILY; DOSAGE FORM = DROP
  6. DOXORUBICINE TEVA 50 MG/25 ML [Suspect]
     Active Substance: DOXORUBICIN
     Indication: OVARIAN CANCER METASTATIC
     Dosage: 30 MILLIGRAM DAILY;
     Route: 042
     Dates: start: 20170310, end: 20170312
  7. HOLOXAN 2G [Suspect]
     Active Substance: IFOSFAMIDE
     Indication: OVARIAN CANCER METASTATIC
     Dosage: 3.84 GRAM DAILY; FORM OF ADMIN.: LYOPHILISATE FOR SOLUTION FOR INJECTION
     Dates: start: 20170310, end: 20170312
  8. CORTANCYL [Concomitant]
     Active Substance: PREDNISONE
     Dosage: 20 MILLIGRAM DAILY;
  9. LEVOTHYROX [Concomitant]
     Active Substance: LEVOTHYROXINE
     Dosage: 112.5 MICROGRAM DAILY;

REACTIONS (2)
  - Thrombocytopenia [Recovered/Resolved]
  - Agranulocytosis [Recovered/Resolved]

NARRATIVE: CASE EVENT DATE: 20170317
